FAERS Safety Report 8321743-3 (Version None)
Quarter: 2012Q2

REPORT INFORMATION
  Report Type: 
  Country: None (occurrence: None)
  Receive Date: 20120430
  Receipt Date: 20120420
  Transmission Date: 20120825
  Serious: Yes (Other)
  Sender: FDA-Public Use
  Company Number: US-SANOFI-AVENTIS-2012SA028048

PATIENT
  Age: 69 Year
  Sex: Male

DRUGS (4)
  1. LOVENOX [Concomitant]
  2. EFFIENT [Concomitant]
  3. WARFARIN SODIUM [Suspect]
  4. PLAVIX [Suspect]
     Route: 065

REACTIONS (7)
  - THROMBOSIS [None]
  - EJECTION FRACTION DECREASED [None]
  - DRUG INEFFECTIVE [None]
  - PULMONARY EMBOLISM [None]
  - MYOCARDIAL INFARCTION [None]
  - CARDIO-RESPIRATORY ARREST [None]
  - ARTERIAL OCCLUSIVE DISEASE [None]
